FAERS Safety Report 4649087-1 (Version None)
Quarter: 2005Q2

REPORT INFORMATION
  Report Type: 
  Country: None (occurrence: None)
  Receive Date: 20050331
  Receipt Date: 20041222
  Transmission Date: 20051028
  Serious: No
  Sender: FDA-Public Use
  Company Number: 04P-163-0284539-00

PATIENT
  Age: 71 Year
  Sex: Female

DRUGS (10)
  1. HUMIRA [Suspect]
     Indication: RHEUMATOID ARTHRITIS
     Dosage: 40 MG, 1 IN 2 WK, SUBCUTANEOUS
     Route: 058
     Dates: start: 20040101, end: 20041130
  2. METOPROLOL SUCCINATE [Concomitant]
  3. PREDNISONE TAB [Concomitant]
  4. DYAZIDE [Concomitant]
  5. MONTELUKAST SODIUM [Concomitant]
  6. POTASSIUM CHLORIDE [Concomitant]
  7. FLUOXETINE HCL [Concomitant]
  8. LORAZEPAM [Concomitant]
  9. LANSOPRAZOLE [Concomitant]
  10. FLUTICASONE PROPIONATE [Concomitant]

REACTIONS (1)
  - CYSTITIS [None]
